FAERS Safety Report 13731461 (Version 5)
Quarter: 2018Q2

REPORT INFORMATION
  Report Type: Spontaneous
  Country: NZ (occurrence: NZ)
  Receive Date: 20170707
  Receipt Date: 20180629
  Transmission Date: 20180711
  Serious: Yes (Life-Threatening, Hospitalization, Other)
  Sender: FDA-Public Use
  Company Number: NZ-BRISTOL-MYERS SQUIBB COMPANY-BMS-2017-059682

PATIENT
  Age: 81 Year
  Sex: Male
  Weight: 88 kg

DRUGS (8)
  1. CLOPIDOGREL BISULFATE. [Suspect]
     Active Substance: CLOPIDOGREL BISULFATE
     Indication: PRODUCT USED FOR UNKNOWN INDICATION
     Dosage: 75 MG, QD
     Route: 048
  2. FINASTERIDE. [Concomitant]
     Active Substance: FINASTERIDE
     Indication: PRODUCT USED FOR UNKNOWN INDICATION
     Dosage: UNK
     Route: 065
     Dates: start: 2000
  3. ATORVASTATIN [Concomitant]
     Active Substance: ATORVASTATIN
     Indication: PRODUCT USED FOR UNKNOWN INDICATION
     Dosage: UNK
     Route: 065
     Dates: start: 1990
  4. ELIQUIS [Suspect]
     Active Substance: APIXABAN
     Indication: PRODUCT USED FOR UNKNOWN INDICATION
     Dosage: 2.5 MG, BID
     Route: 048
     Dates: end: 20170427
  5. ASPIRIN                            /00002701/ [Suspect]
     Active Substance: ASPIRIN
     Indication: ANTIPLATELET THERAPY
     Dosage: 100 MG, QD
     Route: 048
     Dates: end: 201701
  6. QUINAPRIL. [Concomitant]
     Active Substance: QUINAPRIL
     Indication: PRODUCT USED FOR UNKNOWN INDICATION
     Dosage: UNK
     Route: 065
     Dates: start: 1990
  7. SOTALOL. [Concomitant]
     Active Substance: SOTALOL
     Indication: PRODUCT USED FOR UNKNOWN INDICATION
     Dosage: UNK
     Route: 065
     Dates: start: 2015
  8. ELIQUIS [Suspect]
     Active Substance: APIXABAN
     Indication: PRODUCT USED FOR UNKNOWN INDICATION
     Dosage: 2.5 MG, BID
     Route: 048
     Dates: start: 2015, end: 201701

REACTIONS (5)
  - Red blood cell count abnormal [Recovering/Resolving]
  - Product use in unapproved indication [Unknown]
  - Internal haemorrhage [Unknown]
  - Haemoglobin decreased [Unknown]
  - Stent placement [Recovered/Resolved with Sequelae]

NARRATIVE: CASE EVENT DATE: 201701
